FAERS Safety Report 5019361-8 (Version None)
Quarter: 2006Q2

REPORT INFORMATION
  Report Type: 
  Country: None (occurrence: None)
  Receive Date: 20060531
  Receipt Date: 20060526
  Transmission Date: 20061013
  Serious: Yes (Hospitalization)
  Sender: FDA-Public Use
  Company Number: 200610692BYL

PATIENT
  Age: 55 Year
  Sex: Male

DRUGS (2)
  1. CIPROFLOXACIN HCL [Suspect]
     Indication: HAEMATOSPERMIA
     Dosage: ORAL
     Route: 048
     Dates: start: 20060513, end: 20060524
  2. GASMOTIN [Concomitant]

REACTIONS (4)
  - BLISTER [None]
  - MALAISE [None]
  - PYREXIA [None]
  - RASH PUSTULAR [None]
